FAERS Safety Report 23737408 (Version 1)
Quarter: 2024Q2

REPORT INFORMATION
  Report Type: Spontaneous
  Country: JP (occurrence: JP)
  Receive Date: 20240412
  Receipt Date: 20240412
  Transmission Date: 20240716
  Serious: Yes (Hospitalization, Other)
  Sender: FDA-Public Use
  Company Number: JP-TRIS PHARMA, INC.-24JP011438

PATIENT

DRUGS (14)
  1. DYANAVEL XR [Suspect]
     Active Substance: AMPHETAMINE
     Indication: Drug dependence
     Dosage: UNK
  2. UNSPECIFIED INGREDIENT [Suspect]
     Active Substance: UNSPECIFIED INGREDIENT
     Indication: Product used for unknown indication
     Dosage: UNK
  3. LITHIUM [Suspect]
     Active Substance: LITHIUM
     Indication: Depression
     Dosage: UNK
     Route: 048
  4. LITHIUM [Suspect]
     Active Substance: LITHIUM
     Indication: Insomnia
  5. ALPRAZOLAM [Suspect]
     Active Substance: ALPRAZOLAM
     Indication: Depression
     Dosage: UNK
     Route: 048
  6. ALPRAZOLAM [Suspect]
     Active Substance: ALPRAZOLAM
     Indication: Insomnia
  7. BROTIZOLAM [Suspect]
     Active Substance: BROTIZOLAM
     Indication: Depression
     Dosage: UNK
     Route: 048
  8. BROTIZOLAM [Suspect]
     Active Substance: BROTIZOLAM
     Indication: Insomnia
  9. ESZOPICLONE [Suspect]
     Active Substance: ESZOPICLONE
     Indication: Depression
     Dosage: UNK
     Route: 048
  10. ESZOPICLONE [Suspect]
     Active Substance: ESZOPICLONE
     Indication: Insomnia
  11. LEVOMEPROMAZINE [Suspect]
     Active Substance: LEVOMEPROMAZINE
     Indication: Depression
     Dosage: UNK
     Route: 048
  12. LEVOMEPROMAZINE [Suspect]
     Active Substance: LEVOMEPROMAZINE
     Indication: Insomnia
  13. CHLORPROMAZINE [Suspect]
     Active Substance: CHLORPROMAZINE
     Indication: Depression
     Dosage: UNK
     Route: 048
  14. CHLORPROMAZINE [Suspect]
     Active Substance: CHLORPROMAZINE
     Indication: Insomnia

REACTIONS (14)
  - Encephalopathy [Recovered/Resolved]
  - Encephalitis [Recovered/Resolved]
  - Cytotoxic lesions of corpus callosum [Recovered/Resolved]
  - Renal failure [Recovered/Resolved]
  - Urinary tract infection [Recovered/Resolved]
  - Pyelonephritis [Recovered/Resolved]
  - Dehydration [Recovered/Resolved]
  - Fall [Recovered/Resolved]
  - Hypotension [Recovered/Resolved]
  - Intentional overdose [Recovered/Resolved]
  - Scar [Unknown]
  - Hyperacusis [Unknown]
  - Insomnia [Unknown]
  - Depression [Unknown]
